FAERS Safety Report 6892961-6 (Version None)
Quarter: 2010Q3

REPORT INFORMATION
  Report Type: 
  Country: None (occurrence: None)
  Receive Date: 20100731
  Receipt Date: 20081120
  Transmission Date: 20110219
  Serious: No
  Sender: FDA-Public Use
  Company Number: US-PFIZER INC-2008095783

PATIENT
  Sex: Female

DRUGS (3)
  1. AMLODIPINE [Suspect]
  2. TOPROL-XL [Suspect]
  3. NEXIUM [Suspect]

REACTIONS (1)
  - JOINT SWELLING [None]
